FAERS Safety Report 8579850-6 (Version None)
Quarter: 2012Q3

REPORT INFORMATION
  Report Type: 
  Country: None (occurrence: None)
  Receive Date: 20120808
  Receipt Date: 20120801
  Transmission Date: 20120928
  Serious: Yes (Hospitalization)
  Sender: FDA-Public Use
  Company Number: JP-VERTEX PHARMACEUTICALS INC.-AE-2012-003626

PATIENT
  Age: 57 Year
  Sex: Female

DRUGS (89)
  1. PEG-INTRON [Concomitant]
     Route: 058
     Dates: start: 20120202
  2. REBETOL [Concomitant]
     Route: 048
     Dates: start: 20120202, end: 20120312
  3. FULMETA: OINTMENT [Concomitant]
     Route: 061
     Dates: start: 20120502, end: 20120502
  4. ATARAX [Concomitant]
     Route: 065
     Dates: start: 20120308, end: 20120315
  5. KENALOG [Concomitant]
     Route: 061
     Dates: start: 20120308, end: 20120308
  6. ZOLPIDEM [Concomitant]
     Route: 048
     Dates: start: 20120406, end: 20120501
  7. ACETAMINOPHEN [Concomitant]
     Route: 048
     Dates: start: 20120419, end: 20120428
  8. PREDNISOLONE [Concomitant]
     Indication: ADVERSE EVENT
     Route: 048
     Dates: start: 20120308, end: 20120311
  9. PREDNISOLONE [Concomitant]
     Route: 048
     Dates: start: 20120419, end: 20120425
  10. PREDNISOLONE [Concomitant]
     Route: 048
     Dates: start: 20120426, end: 20120508
  11. PREDNISOLONE [Concomitant]
     Route: 048
     Dates: start: 20120509, end: 20120515
  12. PROSTERISAN [Concomitant]
     Route: 061
     Dates: start: 20120508, end: 20120508
  13. PREDNISOLONE [Concomitant]
     Route: 048
     Dates: start: 20120426, end: 20120501
  14. AZUNOL [Concomitant]
     Route: 061
     Dates: start: 20120320, end: 20120320
  15. REBETOL [Concomitant]
     Route: 048
     Dates: start: 20120315, end: 20120328
  16. MOTILIUM [Concomitant]
     Route: 048
     Dates: start: 20120301, end: 20120321
  17. CLOBETASOL PROPIONATE [Concomitant]
     Route: 061
     Dates: start: 20120326, end: 20120326
  18. NERISONA [Concomitant]
     Route: 051
     Dates: start: 20120314, end: 20120314
  19. PREDNISOLONE [Concomitant]
     Route: 048
     Dates: start: 20120516, end: 20120516
  20. PREDNISOLONE [Concomitant]
     Route: 048
     Dates: start: 20120509, end: 20120516
  21. PEG-INTRON [Concomitant]
     Route: 058
     Dates: start: 20120315, end: 20120315
  22. REBETOL [Concomitant]
     Route: 048
     Dates: start: 20120329, end: 20120427
  23. PROMAC [Concomitant]
     Route: 048
     Dates: start: 20120301, end: 20120307
  24. TALION OD [Concomitant]
     Route: 048
     Dates: start: 20120302, end: 20120307
  25. FULMETA: OINTMENT [Concomitant]
     Route: 061
     Dates: start: 20120302, end: 20120302
  26. LANSOPRAZOLE [Concomitant]
     Route: 048
     Dates: start: 20120308, end: 20120318
  27. LANSOPRAZOLE [Concomitant]
     Route: 048
     Dates: start: 20120319, end: 20120321
  28. LANSOPRAZOLE [Concomitant]
     Route: 048
     Dates: start: 20120427, end: 20120515
  29. CLOBETASOL PROPIONATE [Concomitant]
     Route: 061
     Dates: start: 20120321, end: 20120321
  30. KINDAVATE [Concomitant]
     Route: 061
     Dates: start: 20120308, end: 20120308
  31. ZOLPIDEM [Concomitant]
     Route: 048
     Dates: start: 20120311, end: 20120404
  32. EKSALB [Concomitant]
     Route: 051
     Dates: start: 20120324, end: 20120324
  33. ALMARARL [Concomitant]
     Route: 048
     Dates: start: 20120412, end: 20120429
  34. PREDNISOLONE [Concomitant]
     Route: 048
     Dates: start: 20120326, end: 20120328
  35. PREDNISOLONE [Concomitant]
     Route: 048
     Dates: start: 20120517, end: 20120521
  36. HIRUDOID [Concomitant]
     Route: 061
     Dates: start: 20120523, end: 20120523
  37. HIRUDOID [Concomitant]
     Route: 061
     Dates: start: 20120606, end: 20120606
  38. TELAVIC [Suspect]
     Route: 048
     Dates: start: 20120315, end: 20120419
  39. PEG-INTRON [Concomitant]
     Indication: HEPATITIS C
     Route: 058
     Dates: start: 20120126, end: 20120126
  40. PEG-INTRON [Concomitant]
     Route: 058
     Dates: start: 20120308, end: 20120308
  41. FULMETA: OINTMENT [Concomitant]
     Route: 061
     Dates: start: 20120318, end: 20120318
  42. LANSOPRAZOLE [Concomitant]
     Route: 048
     Dates: start: 20120517, end: 20120612
  43. NERISONA [Concomitant]
     Route: 051
     Dates: start: 20120311, end: 20120311
  44. CYMBALTA [Concomitant]
     Route: 048
     Dates: start: 20120427, end: 20120429
  45. PREDNISOLONE [Concomitant]
     Route: 048
     Dates: start: 20120329, end: 20120404
  46. HIRUDOID [Concomitant]
     Route: 061
     Dates: start: 20120516, end: 20120516
  47. PEG-INTRON [Concomitant]
     Route: 058
     Dates: start: 20120322, end: 20120426
  48. REBETOL [Concomitant]
     Indication: HEPATITIS C
     Route: 048
     Dates: start: 20120126, end: 20120201
  49. PROMAC [Concomitant]
     Route: 048
     Dates: start: 20120613, end: 20120712
  50. FULMETA: OINTMENT [Concomitant]
     Route: 061
     Dates: start: 20120516, end: 20120516
  51. CLOBETASOL PROPIONATE [Concomitant]
     Route: 061
     Dates: start: 20120310, end: 20120310
  52. CLONAZEPAM [Concomitant]
     Route: 048
     Dates: start: 20120327, end: 20120402
  53. CLONAZEPAM [Concomitant]
     Route: 048
     Dates: start: 20120412, end: 20120412
  54. LASIX [Concomitant]
     Route: 048
     Dates: start: 20120423, end: 20120516
  55. PREDNISOLONE [Concomitant]
     Route: 048
     Dates: start: 20120407, end: 20120407
  56. PREDNISOLONE [Concomitant]
     Route: 048
     Dates: start: 20120412, end: 20120418
  57. HIRUDOID [Concomitant]
     Route: 061
     Dates: start: 20120419, end: 20120419
  58. 2% SODIUM BICARBONATE [Concomitant]
     Dates: start: 20120430, end: 20120430
  59. FULMETA: OINTMENT [Concomitant]
     Route: 061
     Dates: start: 20120509, end: 20120509
  60. LANSOPRAZOLE [Concomitant]
     Route: 048
     Dates: start: 20120402, end: 20120425
  61. CLOBETASOL PROPIONATE [Concomitant]
     Route: 061
     Dates: start: 20120309, end: 20120309
  62. CLOBETASOL PROPIONATE [Concomitant]
     Route: 061
     Dates: start: 20120314, end: 20120314
  63. CLOBETASOL PROPIONATE [Concomitant]
     Route: 061
     Dates: start: 20120317, end: 20120317
  64. CLOBETASOL PROPIONATE [Concomitant]
     Route: 061
     Dates: start: 20120324, end: 20120324
  65. KINDAVATE [Concomitant]
     Route: 061
     Dates: start: 20120314, end: 20120314
  66. NERISONA [Concomitant]
     Route: 051
     Dates: start: 20120308, end: 20120308
  67. ZOLPIDEM [Concomitant]
     Route: 048
     Dates: start: 20120308, end: 20120309
  68. CLONAZEPAM [Concomitant]
     Route: 048
     Dates: start: 20120403, end: 20120411
  69. PREDNISOLONE [Concomitant]
     Route: 048
     Dates: start: 20120405, end: 20120406
  70. TELAVIC [Suspect]
     Indication: HEPATITIS C
     Route: 048
     Dates: start: 20120126, end: 20120314
  71. LANSOPRAZOLE [Concomitant]
     Route: 048
     Dates: start: 20120322, end: 20120328
  72. ZOLPIDEM [Concomitant]
     Route: 048
     Dates: start: 20120405, end: 20120405
  73. AZUNOL 5 P [Concomitant]
     Route: 048
     Dates: start: 20120309, end: 20120309
  74. CLONAZEPAM [Concomitant]
     Route: 048
     Dates: start: 20120413, end: 20120429
  75. PREDNISOLONE [Concomitant]
     Route: 048
     Dates: start: 20120408, end: 20120410
  76. HIRUDOID [Concomitant]
     Route: 061
     Dates: start: 20120426, end: 20120426
  77. FULMETA: OINTMENT [Concomitant]
     Route: 061
     Dates: start: 20120509, end: 20120509
  78. FULMETA: OINTMENT [Concomitant]
     Route: 061
     Dates: start: 20120523, end: 20120523
  79. LANSOPRAZOLE [Concomitant]
     Route: 048
     Dates: start: 20120329, end: 20120401
  80. LANSOPRAZOLE [Concomitant]
     Route: 048
     Dates: start: 20120516, end: 20120516
  81. CLOBETASOL PROPIONATE [Concomitant]
     Route: 061
     Dates: start: 20120308, end: 20120308
  82. ATARAX [Concomitant]
     Dates: start: 20120419, end: 20120425
  83. ZOLPIDEM [Concomitant]
     Route: 048
     Dates: start: 20120505, end: 20120511
  84. PREDNISOLONE [Concomitant]
     Route: 048
     Dates: start: 20120312, end: 20120314
  85. PREDNISOLONE [Concomitant]
     Route: 048
     Dates: start: 20120315, end: 20120320
  86. PREDNISOLONE [Concomitant]
     Route: 048
     Dates: start: 20120321, end: 20120321
  87. PREDNISOLONE [Concomitant]
     Route: 048
     Dates: start: 20120322, end: 20120324
  88. MAGLAX [Concomitant]
     Route: 048
     Dates: start: 20120508, end: 20120521
  89. HIRUDOID [Concomitant]
     Route: 061
     Dates: start: 20120509, end: 20120509

REACTIONS (2)
  - TOXIC SKIN ERUPTION [None]
  - ANXIETY DISORDER [None]
